FAERS Safety Report 7075479-X (Version None)
Quarter: 2010Q4

REPORT INFORMATION
  Report Type: 
  Country: None (occurrence: None)
  Receive Date: 20101030
  Receipt Date: 20100907
  Transmission Date: 20110411
  Serious: No
  Sender: FDA-Public Use
  Company Number: US-WYE-H17413010

PATIENT
  Age: 19 Year
  Sex: Female
  Weight: 63.56 kg

DRUGS (4)
  1. ALAVERT [Suspect]
     Indication: HYPERSENSITIVITY
     Route: 048
     Dates: start: 20070101
  2. ALAVERT [Suspect]
     Indication: SNEEZING
  3. ALAVERT [Suspect]
     Indication: RHINORRHOEA
  4. ORAL CONTRACEPTIVE NOS [Concomitant]

REACTIONS (1)
  - DRUG EFFECT DECREASED [None]
